FAERS Safety Report 11461071 (Version 1)
Quarter: 2015Q3

REPORT INFORMATION
  Report Type: Spontaneous
  Country: US (occurrence: US)
  Receive Date: 20150831
  Receipt Date: 20150831
  Transmission Date: 20151125
  Serious: No
  Sender: FDA-Public Use
  Company Number: US-ELI_LILLY_AND_COMPANY-US201005007781

PATIENT
  Age: 82 Year
  Sex: Female

DRUGS (2)
  1. CYMBALTA [Suspect]
     Active Substance: DULOXETINE HYDROCHLORIDE
     Indication: NEURALGIA
     Dosage: 30 MG, DAILY (1/D)
     Dates: start: 20100518, end: 20100524
  2. IBUPROFEN. [Concomitant]
     Active Substance: IBUPROFEN

REACTIONS (3)
  - Dizziness [Unknown]
  - Off label use [Recovered/Resolved]
  - Nausea [Unknown]

NARRATIVE: CASE EVENT DATE: 20100518
